FAERS Safety Report 4778113-4 (Version None)
Quarter: 2005Q3

REPORT INFORMATION
  Report Type: 
  Country: None (occurrence: None)
  Receive Date: 20050922
  Receipt Date: 20050912
  Transmission Date: 20060218
  Serious: Yes (Other)
  Sender: FDA-Public Use
  Company Number: 2005124304

PATIENT
  Age: 80 Year
  Sex: Female
  Weight: 69.4003 kg

DRUGS (17)
  1. TIKOSYN [Suspect]
     Indication: ATRIAL FIBRILLATION
     Dosage: 1000, MCG (500 MCG, 2 IN 1 D),ORAL
     Route: 048
  2. KEFLEX [Suspect]
     Indication: URINARY TRACT INFECTION
     Dosage: (250 MG), ORAL
     Route: 048
  3. COUMADIN [Concomitant]
  4. OS-CAL D (CALCIUM  CARBOANTE, COLECALCIEROL) [Concomitant]
  5. CENTRUM SILVER (ASCORBIC ACID, CALCIUM, MINERALS NOS, RETINOL, TOCOPHE [Concomitant]
  6. COZAAR (LOSATAN POTASSIUM) [Concomitant]
  7. LOPRESSOR [Concomitant]
  8. CARDIZEM [Concomitant]
  9. SYNTHROID [Concomitant]
  10. ALLEGRA [Concomitant]
  11. FORADIL [Concomitant]
  12. COMBIVENT [Concomitant]
  13. QVAR (BECLOMETASONE DIPROPIONATE) [Concomitant]
  14. ARTHROTEC [Concomitant]
  15. NASONEX [Concomitant]
  16. NEXIUM [Concomitant]
  17. MUCINEX (GUAIFENESIN) [Concomitant]

REACTIONS (14)
  - ASTHMA [None]
  - ATRIAL FIBRILLATION [None]
  - BLOOD CREATININE INCREASED [None]
  - BLOOD UREA INCREASED [None]
  - BODY HEIGHT DECREASED [None]
  - CHRONIC OBSTRUCTIVE PULMONARY DISEASE [None]
  - CONDITION AGGRAVATED [None]
  - CYSTITIS [None]
  - DRUG EFFECT DECREASED [None]
  - LUNG NEOPLASM MALIGNANT [None]
  - LYMPHADENOPATHY [None]
  - MASS [None]
  - OSTEOPENIA [None]
  - URINARY TRACT INFECTION [None]
